FAERS Safety Report 5809224-X (Version None)
Quarter: 2008Q3

REPORT INFORMATION
  Report Type: 
  Country: None (occurrence: None)
  Receive Date: 20080714
  Receipt Date: 20080707
  Transmission Date: 20090109
  Serious: Yes (Hospitalization)
  Sender: FDA-Public Use
  Company Number: GR-ABBOTT-08P-066-0431991-00

PATIENT
  Age: 61 Year
  Sex: Female
  Weight: 84.5 kg

DRUGS (4)
  1. ZEMPLAR [Suspect]
     Indication: HYPERPARATHYROIDISM SECONDARY
     Dosage: HEMODIALYSIS
     Route: 042
     Dates: start: 20070206
  2. ALUCAP CAPS [Concomitant]
     Indication: BLOOD PHOSPHORUS
     Route: 048
     Dates: start: 20070818
  3. CLOPIDOGREL [Concomitant]
     Indication: ANTICOAGULANT THERAPY
     Route: 048
     Dates: start: 20060501
  4. EPOETIN ALFA [Concomitant]
     Indication: ANAEMIA
     Route: 042
     Dates: start: 20070818

REACTIONS (2)
  - BRADYARRHYTHMIA [None]
  - CHEST PAIN [None]
